FAERS Safety Report 14187352 (Version 1)
Quarter: 2017Q4

REPORT INFORMATION
  Report Type: Spontaneous
  Country: US (occurrence: US)
  Receive Date: 20171113
  Receipt Date: 20171113
  Transmission Date: 20180321
  Serious: Yes (Life-Threatening, Disabling)
  Sender: FDA-Public Use
  Company Number: None

PATIENT
  Age: 37 Year
  Sex: Male
  Weight: 98.1 kg

DRUGS (25)
  1. PRILOSEC [Concomitant]
     Active Substance: OMEPRAZOLE MAGNESIUM
  2. VISTARIL [Concomitant]
     Active Substance: HYDROXYZINE PAMOATE
  3. PRAVASTATIN SODIUM. [Concomitant]
     Active Substance: PRAVASTATIN SODIUM
  4. ZINC. [Concomitant]
     Active Substance: ZINC
  5. FISH OIL [Concomitant]
     Active Substance: FISH OIL
  6. KLONOPIN [Concomitant]
     Active Substance: CLONAZEPAM
  7. CYMBALTA [Concomitant]
     Active Substance: DULOXETINE HYDROCHLORIDE
  8. QVAR [Concomitant]
     Active Substance: BECLOMETHASONE DIPROPIONATE
  9. CINNAMON. [Concomitant]
     Active Substance: CINNAMON
  10. MOTRIN [Concomitant]
     Active Substance: IBUPROFEN
  11. FLEXERIL [Concomitant]
     Active Substance: CYCLOBENZAPRINE HYDROCHLORIDE
  12. PROLIXIN [Concomitant]
     Active Substance: FLUPHENAZINE HYDROCHLORIDE
  13. MILK THISTLE [Concomitant]
     Active Substance: DIETARY SUPPLEMENT\HERBALS\MILK THISTLE
  14. ZYPREXA [Suspect]
     Active Substance: OLANZAPINE
     Indication: SCHIZOPHRENIA
     Dosage: ?          QUANTITY:2 TABLET(S);?
     Route: 048
  15. SELENIUM [Concomitant]
     Active Substance: SELENIUM
  16. HAIR, SKIN + NAILS [Concomitant]
     Active Substance: MINERALS\VITAMINS
  17. ZYPREXA [Concomitant]
     Active Substance: OLANZAPINE
  18. COMBIVANT [Concomitant]
  19. COQ10 [Concomitant]
     Active Substance: UBIDECARENONE
  20. MAGNESIUM [Concomitant]
     Active Substance: MAGNESIUM
  21. BIOTIN [Concomitant]
     Active Substance: BIOTIN
  22. MULTIVITAMIN [Concomitant]
     Active Substance: VITAMINS
  23. OCUVITE [Concomitant]
     Active Substance: VITAMINS
  24. NAPROXEN. [Concomitant]
     Active Substance: NAPROXEN
  25. IMMUNO-SHIELD [Concomitant]

REACTIONS (10)
  - Loss of consciousness [None]
  - Fine motor skill dysfunction [None]
  - Feeling abnormal [None]
  - Nightmare [None]
  - Lethargy [None]
  - Dizziness [None]
  - Seizure [None]
  - Blood pressure increased [None]
  - Fear [None]
  - Fatigue [None]
